FAERS Safety Report 13187130 (Version 1)
Quarter: 2017Q1

REPORT INFORMATION
  Report Type: Other
  Country: JP (occurrence: JP)
  Receive Date: 20170206
  Receipt Date: 20170206
  Transmission Date: 20170428
  Serious: Yes (Hospitalization, Other)
  Sender: FDA-Public Use
  Company Number: JP-AJANTA PHARMA USA INC.-1062764

PATIENT
  Age: 76 Year
  Sex: Male

DRUGS (2)
  1. AMLODIPINE AND OLMESARTAN MEDOXOMIL (ANDA 207216) [Suspect]
     Active Substance: AMLODIPINE BESYLATE\OLMESARTAN MEDOXOMIL
     Indication: HYPERTENSION
     Dates: start: 200805
  2. AMLODIPINE [Concomitant]
     Active Substance: AMLODIPINE BESYLATE
     Dates: start: 2005

REACTIONS (4)
  - Wernicke^s encephalopathy [Not Recovered/Not Resolved]
  - Hyperchloraemia [Unknown]
  - Malabsorption [Recovered/Resolved]
  - Gastrointestinal hypomotility [Recovering/Resolving]
